FAERS Safety Report 9288752 (Version 1)
Quarter: 2013Q2

REPORT INFORMATION
  Report Type: Spontaneous
  Country: US (occurrence: None)
  Receive Date: 20130509
  Receipt Date: 20130509
  Transmission Date: 20140414
  Serious: Yes (Other)
  Sender: FDA-Public Use
  Company Number: FK201301382

PATIENT
  Age: 57 Year
  Sex: Female

DRUGS (1)
  1. BUPIVACAINE [Suspect]
     Indication: POSTOPERATIVE ANALGESIA
     Dosage: UNKNOWN, BOLUS, EPIDURAL

REACTIONS (1)
  - Pyrexia [None]
